FAERS Safety Report 5532722-3 (Version None)
Quarter: 2007Q4

REPORT INFORMATION
  Report Type: 
  Country: None (occurrence: None)
  Receive Date: 20071128
  Receipt Date: 20071119
  Transmission Date: 20080405
  Serious: Yes (Other)
  Sender: FDA-Public Use
  Company Number: CHPA2007US12469

PATIENT
  Sex: Female

DRUGS (1)
  1. KERI ORIGINAL (NCH)(NO INGREDIENTS/SUBSTANCES) LOTION [Suspect]
     Indication: THERAPEUTIC SKIN CARE TOPICAL
     Dosage: TOPICAL
     Route: 061

REACTIONS (1)
  - PHLEBITIS [None]
